FAERS Safety Report 8000539-6 (Version None)
Quarter: 2011Q4

REPORT INFORMATION
  Report Type: 
  Country: None (occurrence: None)
  Receive Date: 20111222
  Receipt Date: 20111219
  Transmission Date: 20120403
  Serious: Yes (Hospitalization)
  Sender: FDA-Public Use
  Company Number: JP-JNJFOC-20111209087

PATIENT
  Age: 67 Year
  Sex: Female

DRUGS (6)
  1. PREDNISOLONE [Concomitant]
     Route: 048
     Dates: start: 20111124, end: 20111211
  2. TACROLIMUS [Concomitant]
     Route: 048
     Dates: start: 20111124, end: 20111209
  3. PREDNISOLONE [Concomitant]
     Route: 048
     Dates: start: 20111101
  4. TACROLIMUS [Concomitant]
     Route: 048
     Dates: start: 20111209
  5. METHOTREXATE [Concomitant]
  6. SIMPONI [Suspect]
     Indication: RHEUMATOID ARTHRITIS
     Route: 058
     Dates: start: 20111124

REACTIONS (3)
  - PULPITIS DENTAL [None]
  - DIARRHOEA [None]
  - VOMITING [None]
